FAERS Safety Report 10598424 (Version 1)
Quarter: 2014Q4

REPORT INFORMATION
  Report Type: Spontaneous
  Country: US (occurrence: None)
  Receive Date: 20141119
  Receipt Date: 20141119
  Transmission Date: 20150529
  Serious: No
  Sender: FDA-Public Use
  Company Number: 1000070153

PATIENT
  Age: 68 Year
  Sex: Female

DRUGS (4)
  1. TUDORZA PRESSAIR [Suspect]
     Active Substance: ACLIDINIUM BROMIDE
     Indication: EMPHYSEMA
     Dosage: 800 MCG (400 MCG, 2 IN 1) RESPIRATORY (INHALATION)
     Route: 055
     Dates: start: 20140803, end: 201408
  2. RESCUE INHALERS [Concomitant]
     Active Substance: UNSPECIFIED INGREDIENT
  3. NEBULIZER NOS [Concomitant]
  4. ADVAIR (FLUTICASONE PROPIONATE) [Concomitant]

REACTIONS (3)
  - Productive cough [None]
  - Dyspnoea [None]
  - Dry eye [None]

NARRATIVE: CASE EVENT DATE: 201408
